APPROVED DRUG PRODUCT: METOCLOPRAMIDE HYDROCHLORIDE
Active Ingredient: METOCLOPRAMIDE HYDROCHLORIDE
Strength: EQ 5MG BASE/ML
Dosage Form/Route: INJECTABLE;INJECTION
Application: A091392 | Product #001
Applicant: FRESENIUS KABI USA LLC
Approved: Apr 19, 2013 | RLD: No | RS: No | Type: DISCN